FAERS Safety Report 8565535-9 (Version None)
Quarter: 2012Q3

REPORT INFORMATION
  Report Type: 
  Country: None (occurrence: None)
  Receive Date: 20120803
  Receipt Date: 20120727
  Transmission Date: 20120928
  Serious: Yes (Other)
  Sender: FDA-Public Use
  Company Number: US-JNJFOC-20120513616

PATIENT
  Sex: Male
  Weight: 63.5 kg

DRUGS (5)
  1. INVEGA SUSTENNA [Suspect]
     Route: 030
     Dates: start: 20110101, end: 20110101
  2. INVEGA SUSTENNA [Suspect]
     Indication: SCHIZOPHRENIA, PARANOID TYPE
     Route: 030
     Dates: start: 20110805, end: 20111101
  3. INVEGA SUSTENNA [Suspect]
     Route: 030
     Dates: start: 20110101, end: 20111121
  4. SIMVASTATIN [Concomitant]
     Indication: FULL BLOOD COUNT
     Route: 065
     Dates: start: 20120401
  5. INVEGA SUSTENNA [Suspect]
     Route: 030
     Dates: start: 20110101

REACTIONS (9)
  - CHEST PAIN [None]
  - FALL [None]
  - TARDIVE DYSKINESIA [None]
  - PARKINSON'S DISEASE [None]
  - LIMB INJURY [None]
  - LACERATION [None]
  - DIZZINESS [None]
  - ADVERSE EVENT [None]
  - PALPITATIONS [None]
